FAERS Safety Report 10267069 (Version 2)
Quarter: 2014Q3

REPORT INFORMATION
  Report Type: Spontaneous
  Country: US (occurrence: US)
  Receive Date: 20140630
  Receipt Date: 20140729
  Transmission Date: 20150326
  Serious: Yes (Other)
  Sender: FDA-Public Use
  Company Number: US-SHIRE-US201403221

PATIENT
  Sex: Male
  Weight: 65.76 kg

DRUGS (4)
  1. NOVOLOG [Suspect]
     Active Substance: INSULIN ASPART
     Indication: TYPE 1 DIABETES MELLITUS
     Dosage: 60 IU, 1X/DAY:QD (INSULIN SUBCUTANEOUS PUMP)
     Route: 058
  2. NOVOLOG [Suspect]
     Active Substance: INSULIN ASPART
     Dosage: 1 IU, ONE DOSE
     Route: 058
     Dates: start: 2014, end: 2014
  3. VYVANSE [Suspect]
     Active Substance: LISDEXAMFETAMINE DIMESYLATE
     Indication: ATTENTION DEFICIT/HYPERACTIVITY DISORDER
     Dosage: 30 MG, 1X/DAY:QD
     Route: 048
     Dates: start: 2014, end: 2014
  4. NOVOLOG [Suspect]
     Active Substance: INSULIN ASPART
     Dosage: 1 IU, ONE DOSE
     Route: 058
     Dates: start: 2014, end: 2014

REACTIONS (6)
  - Dizziness [Recovered/Resolved]
  - Hyperhidrosis [Recovered/Resolved]
  - Drug interaction [Recovered/Resolved]
  - Fear [Recovered/Resolved]
  - Drug ineffective [Recovered/Resolved]
  - Blood glucose fluctuation [Recovered/Resolved]

NARRATIVE: CASE EVENT DATE: 2014
